FAERS Safety Report 4293805-1 (Version None)
Quarter: 2004Q1

REPORT INFORMATION
  Report Type: 
  Country: None (occurrence: None)
  Receive Date: 20040212
  Receipt Date: 20031111
  Transmission Date: 20041129
  Serious: Yes (Death, Other)
  Sender: FDA-Public Use
  Company Number: US-BRISTOL-MYERS SQUIBB COMPANY-12433512

PATIENT
  Age: 37 Year
  Sex: Female

DRUGS (10)
  1. ABILIFY [Suspect]
     Indication: BIPOLAR DISORDER
     Dosage: 15 MG/DAY INITATED ON 05-MAR-03; INCREASED TO 30 MG 21-MAR-2003
     Route: 048
     Dates: start: 20030305
  2. METHADONE HCL [Suspect]
  3. FLUOXETINE [Suspect]
  4. ZONEGRAN [Concomitant]
     Dates: start: 20030623
  5. LORTAB [Concomitant]
     Indication: PAIN
  6. WELLBUTRIN SR [Concomitant]
     Dates: start: 20030623
  7. SEROQUEL [Concomitant]
  8. LITHIUM CARBONATE [Concomitant]
  9. DEPAKOTE [Concomitant]
  10. TOPAMAX [Concomitant]
     Dates: start: 20030413, end: 20030623

REACTIONS (16)
  - AGGRESSION [None]
  - AGORAPHOBIA [None]
  - ANGER [None]
  - BIPOLAR II DISORDER [None]
  - BLADDER PROLAPSE [None]
  - CONFUSIONAL STATE [None]
  - DEPRESSION [None]
  - DRUG TOXICITY [None]
  - HALLUCINATION [None]
  - INTERVERTEBRAL DISC DISORDER [None]
  - MAJOR DEPRESSION [None]
  - MOOD SWINGS [None]
  - PANIC DISORDER [None]
  - POST-TRAUMATIC STRESS DISORDER [None]
  - PSYCHOTIC DISORDER [None]
  - SUICIDAL IDEATION [None]
